FAERS Safety Report 20636781 (Version 2)
Quarter: 2022Q4

REPORT INFORMATION
  Report Type: Other
  Country: IT (occurrence: None)
  Receive Date: 20220325
  Receipt Date: 20221004
  Transmission Date: 20230113
  Serious: No
  Sender: FDA-Public Use
  Company Number: IT-ROCHE-3060375

PATIENT
  Age: 27 Year
  Sex: Female
  Weight: 62 kg

DRUGS (1)
  1. OCRELIZUMAB [Suspect]
     Active Substance: OCRELIZUMAB
     Indication: Relapsing-remitting multiple sclerosis
     Dosage: 04/JAN/2021 (260ML), 11/AUG/2021 (520ML), 21/MAR/2022 (520ML), 03/OCT/2022 (520ML)
     Route: 042
     Dates: start: 20201218

REACTIONS (1)
  - COVID-19 [Recovered/Resolved]

NARRATIVE: CASE EVENT DATE: 20220104
